FAERS Safety Report 7118821-3 (Version None)
Quarter: 2010Q4

REPORT INFORMATION
  Report Type: 
  Country: None (occurrence: None)
  Receive Date: 20101123
  Receipt Date: 20100816
  Transmission Date: 20110411
  Serious: No
  Sender: FDA-Public Use
  Company Number: US-KINGPHARMUSA00001-K201001033

PATIENT
  Age: 67 Year
  Sex: Female
  Weight: 72.562 kg

DRUGS (1)
  1. FLECTOR [Suspect]
     Indication: INFLAMMATION
     Dosage: 1 PATCH, SINGLE
     Route: 061
     Dates: start: 20100814, end: 20100814

REACTIONS (2)
  - DIZZINESS [None]
  - EUPHORIC MOOD [None]
